FAERS Safety Report 14948010 (Version 1)
Quarter: 2018Q2

REPORT INFORMATION
  Report Type: Spontaneous
  Country: US (occurrence: US)
  Receive Date: 20180508
  Receipt Date: 20180508
  Transmission Date: 20180711
  Serious: Yes (Disabling, Other)
  Sender: FDA-Public Use
  Company Number: None

PATIENT
  Age: 35 Month
  Sex: Male
  Weight: 16.2 kg

DRUGS (3)
  1. FLONASE SENSIMIST ALLERGY RELIEF [Suspect]
     Active Substance: FLUTICASONE FUROATE
     Indication: MIDDLE EAR EFFUSION
     Dosage: ?          QUANTITY:60 SPRAY(S);OTHER ROUTE:SPRAY INTO EACH NOSTRIL?
     Dates: start: 20180423, end: 20180507
  2. AUGMENTIN ES-600 [Concomitant]
     Active Substance: AMOXICILLIN\CLAVULANATE POTASSIUM
  3. CLARITIN CHILDRENS [Concomitant]

REACTIONS (5)
  - Restlessness [None]
  - Headache [None]
  - Head titubation [None]
  - Chills [None]
  - Anxiety [None]

NARRATIVE: CASE EVENT DATE: 20180506
